FAERS Safety Report 7769788-6 (Version None)
Quarter: 2011Q3

REPORT INFORMATION
  Report Type: 
  Country: None (occurrence: None)
  Receive Date: 20110922
  Receipt Date: 20100527
  Transmission Date: 20111222
  Serious: No
  Sender: FDA-Public Use
  Company Number: US-ASTRAZENECA-2010SE50919

PATIENT
  Age: 15425 Day
  Sex: Female
  Weight: 100.7 kg

DRUGS (17)
  1. NEURONTIN [Concomitant]
     Dates: start: 20050318, end: 20050613
  2. ARTANE [Concomitant]
     Indication: ADVERSE DRUG REACTION
     Dates: start: 20050113, end: 20050318
  3. SEROQUEL [Suspect]
     Dosage: 25 MG 1-2 PO Q HS PRN
     Route: 048
     Dates: start: 20041217, end: 20050613
  4. LAMICTAL [Concomitant]
     Indication: DEPRESSION
     Dates: start: 20040218, end: 20040412
  5. LAMICTAL [Concomitant]
     Dosage: 200 MG 1/2 QAM AND 1/2 TABLET QHS
     Dates: start: 20040412, end: 20040820
  6. LAMICTAL [Concomitant]
     Dates: start: 20040917, end: 20041011
  7. ABILIFY [Concomitant]
     Indication: MOOD SWINGS
     Dates: start: 20051028, end: 20051118
  8. REMERON [Concomitant]
     Indication: SLEEP DISORDER
     Dates: start: 20050613, end: 20050729
  9. GEODON [Concomitant]
     Indication: MOOD SWINGS
     Dates: start: 20050729, end: 20051028
  10. SEROQUEL [Suspect]
     Indication: SLEEP DISORDER
     Route: 048
     Dates: start: 20040218, end: 20040412
  11. LAMICTAL [Concomitant]
     Dates: start: 20040822, end: 20040917
  12. VISTARIL [Concomitant]
     Indication: ANXIETY
     Dates: start: 20041011, end: 20050318
  13. TEGRETOL [Concomitant]
     Indication: MOOD SWINGS
     Dates: start: 20050613, end: 20050725
  14. SEROQUEL [Suspect]
     Indication: PSYCHOTIC DISORDER
     Route: 048
     Dates: start: 20040218, end: 20040412
  15. SEROQUEL [Suspect]
     Dosage: 25 MG 1-2 PO Q HS PRN
     Route: 048
     Dates: start: 20041217, end: 20050613
  16. NEURONTIN [Concomitant]
     Indication: DEPRESSION
     Dates: start: 20040917, end: 20050318
  17. TOPAMAX [Concomitant]
     Indication: DEPRESSION
     Dates: start: 20050725, end: 20050729

REACTIONS (4)
  - OSTEOARTHRITIS [None]
  - BODY TINEA [None]
  - RASH [None]
  - GASTROOESOPHAGEAL REFLUX DISEASE [None]
